FAERS Safety Report 15531738 (Version 6)
Quarter: 2021Q1

REPORT INFORMATION
  Report Type: Spontaneous
  Country: US (occurrence: US)
  Receive Date: 20181019
  Receipt Date: 20210305
  Transmission Date: 20210419
  Serious: Yes (Life-Threatening, Hospitalization, Other)
  Sender: FDA-Public Use
  Company Number: US-PFIZER INC-2018424370

PATIENT
  Age: 75 Year
  Sex: Female
  Weight: 69.4 kg

DRUGS (1)
  1. LYRICA [Suspect]
     Active Substance: PREGABALIN
     Indication: FIBROMYALGIA
     Dosage: 75 MG, 2X/DAY (TWO PILLS A DAY)
     Route: 048

REACTIONS (7)
  - Herpes zoster [Unknown]
  - Expired product administered [Unknown]
  - Drug dependence [Unknown]
  - Chronic obstructive pulmonary disease [Unknown]
  - Coma [Recovered/Resolved]
  - COVID-19 [Recovered/Resolved]
  - Illness [Unknown]
